FAERS Safety Report 12634476 (Version 1)
Quarter: 2016Q3

REPORT INFORMATION
  Report Type: Spontaneous
  Country: US (occurrence: US)
  Receive Date: 20160809
  Receipt Date: 20160809
  Transmission Date: 20161109
  Serious: Yes (Hospitalization)
  Sender: FDA-Public Use
  Company Number: US-BAYER-2016-153871

PATIENT
  Age: 24 Year
  Sex: Female
  Weight: 80.72 kg

DRUGS (1)
  1. BAYER GENUINE ASPIRIN [Suspect]
     Active Substance: ASPIRIN
     Indication: ANALGESIC THERAPY
     Dosage: 2 DF, ONCE
     Route: 048
     Dates: start: 1960

REACTIONS (2)
  - Drug hypersensitivity [None]
  - Swelling [None]

NARRATIVE: CASE EVENT DATE: 1960
